FAERS Safety Report 7949375-7 (Version None)
Quarter: 2011Q4

REPORT INFORMATION
  Report Type: 
  Country: None (occurrence: None)
  Receive Date: 20111130
  Receipt Date: 20110704
  Transmission Date: 20120403
  Serious: Yes (Other)
  Sender: FDA-Public Use
  Company Number: CA-GLAXOSMITHKLINE-A0934834A

PATIENT
  Sex: Female

DRUGS (4)
  1. PERINDOPRIL ERBUMINE [Concomitant]
     Dosage: 16MG PER DAY
  2. HYDROCHLOROTHIAZIDE [Concomitant]
     Dosage: 25MG PER DAY
  3. VOTRIENT [Suspect]
     Indication: RENAL CANCER METASTATIC
     Dosage: 800MG PER DAY
     Route: 048
     Dates: start: 20110608
  4. SYNTHROID [Concomitant]

REACTIONS (3)
  - FATIGUE [None]
  - HYPERTENSION [None]
  - PANCREATITIS [None]
